FAERS Safety Report 7210831-0 (Version None)
Quarter: 2011Q1

REPORT INFORMATION
  Report Type: 
  Country: None (occurrence: None)
  Receive Date: 20110105
  Receipt Date: 20101217
  Transmission Date: 20110831
  Serious: Yes (Other)
  Sender: FDA-Public Use
  Company Number: PHHY2010US77621

PATIENT
  Sex: Female

DRUGS (7)
  1. ACETAMINOPHEN [Concomitant]
     Indication: PAIN
     Dosage: UNK
  2. CRESTOR [Concomitant]
     Indication: BLOOD CHOLESTEROL
     Dosage: 20 MG QHS
     Dates: start: 20050101
  3. AMBIEN [Concomitant]
     Indication: INSOMNIA
     Dosage: 5 MG QHS
     Dates: start: 20060101
  4. K-DUR [Concomitant]
     Dosage: 20 MG, BID
     Dates: start: 20101112
  5. RECLAST [Suspect]
     Indication: SENILE OSTEOPOROSIS
     Dosage: 5 MG, ONCE
     Route: 042
     Dates: start: 20101018
  6. PAXIL [Concomitant]
     Indication: DEPRESSION
     Dosage: 25 MG ONCE DAILY
     Dates: start: 20000101
  7. CALCIUM [Concomitant]

REACTIONS (2)
  - BLOOD CREATININE INCREASED [None]
  - BLOOD POTASSIUM DECREASED [None]
